FAERS Safety Report 7530724-9 (Version None)
Quarter: 2011Q2

REPORT INFORMATION
  Report Type: 
  Country: None (occurrence: None)
  Receive Date: 20110607
  Receipt Date: 20110602
  Transmission Date: 20111010
  Serious: Yes (Other)
  Sender: FDA-Public Use
  Company Number: GB-PFIZER INC-2011120611

PATIENT
  Age: 49 Year
  Sex: Male

DRUGS (1)
  1. VARENICLINE TARTRATE [Suspect]
     Indication: SMOKING CESSATION THERAPY
     Dosage: 1 MG, 2X/DAY
     Route: 048
     Dates: start: 20110428, end: 20110523

REACTIONS (9)
  - INSOMNIA [None]
  - FATIGUE [None]
  - DYSKINESIA [None]
  - THINKING ABNORMAL [None]
  - AGITATION [None]
  - ENERGY INCREASED [None]
  - PRESSURE OF SPEECH [None]
  - RESTLESSNESS [None]
  - TACHYPHRENIA [None]
